FAERS Safety Report 6228326-X (Version None)
Quarter: 2009Q2

REPORT INFORMATION
  Report Type: 
  Country: None (occurrence: None)
  Receive Date: 20090610
  Receipt Date: 20090610
  Transmission Date: 20091009
  Serious: Yes (Life-Threatening)
  Sender: FDA-Public Use
  Company Number: None

PATIENT
  Sex: Male

DRUGS (2)
  1. DEPAKOTE ER [Suspect]
     Indication: CONVULSION
     Dosage: 500 MG ONCE PO QD
     Route: 048
  2. DEPAKOTE ER [Suspect]
     Dosage: 250 MG ONCE PO QD
     Route: 048

REACTIONS (1)
  - PRODUCT SUBSTITUTION ISSUE [None]
